FAERS Safety Report 9459661 (Version 1)
Quarter: 2013Q3

REPORT INFORMATION
  Report Type: Spontaneous
  Country: US (occurrence: US)
  Receive Date: 20130815
  Receipt Date: 20130815
  Transmission Date: 20140515
  Serious: Yes (Other)
  Sender: FDA-Public Use
  Company Number: US-ASTRAZENECA-2013SE62909

PATIENT
  Age: 82 Year
  Sex: Male
  Weight: 76.2 kg

DRUGS (4)
  1. PRILOSEC DELAYED-RELEASE CAPSULES [Suspect]
     Dosage: AT NIGHT
     Route: 048
  2. CRESTOR [Suspect]
     Indication: BLOOD CHOLESTEROL ABNORMAL
     Route: 048
  3. CRESTOR [Suspect]
     Indication: BLOOD PRESSURE ABNORMAL
     Route: 048
  4. UNSPECIFIED [Concomitant]

REACTIONS (4)
  - Back disorder [Not Recovered/Not Resolved]
  - Thirst [Not Recovered/Not Resolved]
  - Musculoskeletal disorder [Not Recovered/Not Resolved]
  - Pain in extremity [Not Recovered/Not Resolved]
